FAERS Safety Report 8519847-5 (Version None)
Quarter: 2012Q3

REPORT INFORMATION
  Report Type: 
  Country: None (occurrence: None)
  Receive Date: 20120719
  Receipt Date: 20120712
  Transmission Date: 20120928
  Serious: No
  Sender: FDA-Public Use
  Company Number: US-BIOGENIDEC-2012BI025147

PATIENT
  Age: 64 Year
  Sex: Female

DRUGS (1)
  1. TYSABRI [Suspect]
     Indication: MULTIPLE SCLEROSIS
     Route: 042
     Dates: start: 20120706

REACTIONS (5)
  - ASTHENIA [None]
  - BLOOD GLUCOSE DECREASED [None]
  - DIARRHOEA [None]
  - GAIT DISTURBANCE [None]
  - HEADACHE [None]
